FAERS Safety Report 10924245 (Version 1)
Quarter: 2015Q1

REPORT INFORMATION
  Report Type: Spontaneous
  Country: US (occurrence: None)
  Receive Date: 20150202
  Receipt Date: 20150202
  Transmission Date: 20150721
  Serious: Yes (Hospitalization)
  Sender: FDA-Public Use
  Company Number: TPA2012A00150

PATIENT
  Age: 69 Year
  Sex: Female
  Weight: 52.16 kg

DRUGS (5)
  1. ^THYROID TABLETS (THYROID THERAPY) [Concomitant]
  2. PERCOCET (PARACETAMOL, OXYCODONE HYDROCHLORIDE, OXYCODONE TEREPHTHALATE) [Concomitant]
  3. DEXILANT [Suspect]
     Active Substance: DEXLANSOPRAZOLE
     Indication: GASTROOESOPHAGEAL REFLUX DISEASE
     Route: 048
  4. ESTROGEN (ESTRADIOL) [Concomitant]
  5. VICODIN (PARACETAMOL, HYDROCODONE BITARTRATE) [Concomitant]

REACTIONS (5)
  - Abdominal pain upper [None]
  - Weight decreased [None]
  - Asthenia [None]
  - Irritability [None]
  - Diarrhoea [None]
